FAERS Safety Report 19823932 (Version 2)
Quarter: 2021Q3

REPORT INFORMATION
  Report Type: Spontaneous
  Country: JP (occurrence: JP)
  Receive Date: 20210913
  Receipt Date: 20210917
  Transmission Date: 20211014
  Serious: Yes (Other)
  Sender: FDA-Public Use
  Company Number: JP-FERRINGPH-2021FE05783

PATIENT
  Age: 31 Year
  Sex: Female
  Weight: 62.5 kg

DRUGS (1)
  1. PROPESS [Suspect]
     Active Substance: DINOPROSTONE
     Indication: PRODUCT USED FOR UNKNOWN INDICATION
     Route: 067

REACTIONS (5)
  - Hypertension [Unknown]
  - Restlessness [Unknown]
  - Tremor [Unknown]
  - Nausea [Unknown]
  - Gestational hypertension [Unknown]
